FAERS Safety Report 17906947 (Version 2)
Quarter: 2020Q3

REPORT INFORMATION
  Report Type: Spontaneous
  Country: US (occurrence: US)
  Receive Date: 20200617
  Receipt Date: 20200707
  Transmission Date: 20201103
  Serious: Yes (Other)
  Sender: FDA-Public Use
  Company Number: US-PFIZER INC-2019229692

PATIENT
  Age: 66 Year
  Sex: Female
  Weight: 65.76 kg

DRUGS (2)
  1. RELPAX [Suspect]
     Active Substance: ELETRIPTAN HYDROBROMIDE
     Indication: MIGRAINE WITHOUT AURA
     Dosage: 40 MG, AS NEEDED (40 MG, 1 TABLET WHEN NEEDED, MAY REPEAT IN 2 HRS (MAX 2 TABS/DAY))
     Route: 048
  2. RELPAX [Suspect]
     Active Substance: ELETRIPTAN HYDROBROMIDE
     Dosage: UNK (HAD SOME LEFT OVER OR SOMETIMES HAD TO TAKE 2 AND THEN A COUPLE DAYS LATER HAS TO TAKE 2)

REACTIONS (7)
  - Altered state of consciousness [Unknown]
  - Fall [Unknown]
  - Recalled product administered [Unknown]
  - Gait disturbance [Unknown]
  - Confusional state [Unknown]
  - Muscle spasms [Unknown]
  - Spinal column injury [Unknown]
